FAERS Safety Report 14827876 (Version 2)
Quarter: 2018Q2

REPORT INFORMATION
  Report Type: Spontaneous
  Country: ES (occurrence: ES)
  Receive Date: 20180430
  Receipt Date: 20180507
  Transmission Date: 20180711
  Serious: Yes (Other)
  Sender: FDA-Public Use
  Company Number: ES-PFIZER INC-2018171904

PATIENT
  Age: 45 Year
  Sex: Female

DRUGS (8)
  1. SILDENAFIL. [Concomitant]
     Active Substance: SILDENAFIL
     Dosage: 20 MG, EVERY 8 HOURS
  2. OMEPRAZOLE. [Concomitant]
     Active Substance: OMEPRAZOLE
     Dosage: 20 MG/DAY
  3. TAMOXIFEN CITRATE. [Concomitant]
     Active Substance: TAMOXIFEN CITRATE
     Indication: BREAST CANCER
     Dosage: UNK
     Dates: start: 201208
  4. TAMOXIFEN CITRATE. [Concomitant]
     Active Substance: TAMOXIFEN CITRATE
     Indication: ARTHRALGIA
  5. BOSENTAN. [Concomitant]
     Active Substance: BOSENTAN
     Dosage: 125 MG, EVERY 12 HOURS
  6. ZOLEDRONIC ACID [Suspect]
     Active Substance: ZOLEDRONIC ACID
     Indication: BREAST CANCER
     Dosage: UNK
  7. IBUPROFEN. [Concomitant]
     Active Substance: IBUPROFEN
     Dosage: UNK UNK, AS NEEDED
  8. TRAMADOL/PARACETAMOL [Concomitant]
     Active Substance: ACETAMINOPHEN\TRAMADOL
     Dosage: UNK UNK, AS NEEDED

REACTIONS (1)
  - Tooth infection [Unknown]

NARRATIVE: CASE EVENT DATE: 201307
